FAERS Safety Report 8448727-9 (Version None)
Quarter: 2012Q2

REPORT INFORMATION
  Report Type: 
  Country: None (occurrence: None)
  Receive Date: 20120619
  Receipt Date: 20120604
  Transmission Date: 20120825
  Serious: Yes (Other)
  Sender: FDA-Public Use
  Company Number: FR-ROCHE-1079647

PATIENT

DRUGS (5)
  1. IRINOTECAN HCL [Suspect]
     Indication: COLORECTAL CANCER METASTATIC
     Dosage: 1 HOUR INFUSION
  2. LEUCOVORIN CALCIUM [Suspect]
     Indication: COLORECTAL CANCER METASTATIC
     Dosage: 2 HOUR INFUSION
  3. FLUOROURACIL [Suspect]
     Indication: COLORECTAL CANCER METASTATIC
     Dosage: 46 HOUR INFUSION
  4. AVASTIN [Suspect]
     Indication: COLORECTAL CANCER METASTATIC
  5. IRINOTECAN HCL [Suspect]
     Dosage: 1 HOUR INFUSION FOLLOWING 5-FU INFUSION

REACTIONS (1)
  - RECTAL ULCER [None]
